FAERS Safety Report 9905216 (Version 2)
Quarter: 2014Q1

REPORT INFORMATION
  Report Type: Spontaneous
  Country: US (occurrence: US)
  Receive Date: 20140218
  Receipt Date: 20140218
  Transmission Date: 20141002
  Serious: No
  Sender: FDA-Public Use
  Company Number: US-GILEAD-2012-0053080

PATIENT
  Sex: Male

DRUGS (6)
  1. LETAIRIS [Suspect]
     Indication: PULMONARY HYPERTENSION
     Dosage: 10 MG, UNK
     Route: 048
     Dates: start: 20091104
  2. LETAIRIS [Suspect]
     Indication: PULMONARY EMBOLISM
  3. LETAIRIS [Suspect]
     Indication: CHRONIC OBSTRUCTIVE PULMONARY DISEASE
  4. LETAIRIS [Suspect]
     Indication: THERAPEUTIC PROCEDURE
  5. LETAIRIS [Suspect]
     Indication: CORONARY ARTERY DISEASE
  6. LETAIRIS [Suspect]
     Indication: ANGIOPLASTY

REACTIONS (1)
  - Dyspnoea [Unknown]
